FAERS Safety Report 21411258 (Version 1)
Quarter: 2022Q4

REPORT INFORMATION
  Report Type: Spontaneous
  Country: GB (occurrence: GB)
  Receive Date: 20221005
  Receipt Date: 20221005
  Transmission Date: 20230112
  Serious: Yes (Disabling)
  Sender: FDA-Public Use
  Company Number: GB-MHRA-MED-202209231259352760-NMDFK

PATIENT
  Sex: Female

DRUGS (2)
  1. JARDIANCE [Suspect]
     Active Substance: EMPAGLIFLOZIN
     Indication: Diabetes mellitus
  2. INSULIN HUMAN [Concomitant]
     Active Substance: INSULIN HUMAN
     Indication: Diabetes mellitus
     Dates: end: 20220411

REACTIONS (2)
  - Vulval disorder [Not Recovered/Not Resolved]
  - Lichen sclerosus [Not Recovered/Not Resolved]
